FAERS Safety Report 25473625 (Version 1)
Quarter: 2025Q2

REPORT INFORMATION
  Report Type: Report from Study
  Country: ID (occurrence: ID)
  Receive Date: 20250624
  Receipt Date: 20250624
  Transmission Date: 20250717
  Serious: Yes (Death)
  Sender: DAIICHI
  Company Number: ID-AstraZeneca-CH-00893394A

PATIENT
  Sex: Female

DRUGS (1)
  1. ENHERTU [Suspect]
     Active Substance: FAM-TRASTUZUMAB DERUXTECAN-NXKI
     Indication: Product used for unknown indication
     Dosage: 600 MG, ONCE EVERY 1 WK (200 MILLIGRAM, TIW)
     Route: 065
     Dates: start: 20250106

REACTIONS (1)
  - Death [Fatal]

NARRATIVE: CASE EVENT DATE: 20250528
